FAERS Safety Report 5194541-X (Version None)
Quarter: 2006Q4

REPORT INFORMATION
  Report Type: 
  Country: None (occurrence: None)
  Receive Date: 20061221
  Receipt Date: 20061220
  Transmission Date: 20070319
  Serious: Yes (Hospitalization)
  Sender: FDA-Public Use
  Company Number: HQWYE714820DEC06

PATIENT
  Age: 56 Year
  Sex: Male

DRUGS (6)
  1. AMIODARONE HCL [Suspect]
     Indication: ARRHYTHMIA
     Route: 048
     Dates: start: 20040101, end: 20060101
  2. METOPROLOL SUCCINATE [Concomitant]
  3. CLOPIDOGREL BISULFATE [Concomitant]
  4. INSIDON (OPIPRAMOL HYDROCHLORIDE) [Concomitant]
  5. ALLOPURINOL SODIUM [Concomitant]
  6. RABEPRAZOLE SODIUM [Concomitant]

REACTIONS (3)
  - PHOTOSENSITIVITY REACTION [None]
  - PORPHYRIA [None]
  - SOLAR URTICARIA [None]
